FAERS Safety Report 16915100 (Version 1)
Quarter: 2019Q4

REPORT INFORMATION
  Report Type: Spontaneous
  Country: DE (occurrence: DE)
  Receive Date: 20191014
  Receipt Date: 20191014
  Transmission Date: 20200122
  Serious: Yes (Hospitalization, Other)
  Sender: FDA-Public Use
  Company Number: DE-BRISTOL-MYERS SQUIBB COMPANY-BMS-2019-097669

PATIENT
  Sex: Male

DRUGS (1)
  1. ELIQUIS [Suspect]
     Active Substance: APIXABAN
     Indication: DEEP VEIN THROMBOSIS
     Dosage: 5 MILLIGRAM, BID
     Route: 065
     Dates: start: 20190628

REACTIONS (6)
  - Gastrointestinal disorder [Unknown]
  - Limb discomfort [Unknown]
  - Prescribed underdose [Unknown]
  - Chest discomfort [Unknown]
  - Performance status decreased [Unknown]
  - Heart rate increased [Unknown]
